FAERS Safety Report 6814067-4 (Version None)
Quarter: 2010Q3

REPORT INFORMATION
  Report Type: 
  Country: None (occurrence: None)
  Receive Date: 20100702
  Receipt Date: 20100601
  Transmission Date: 20110219
  Serious: No
  Sender: FDA-Public Use
  Company Number: US-BAYER-201016365BCC

PATIENT
  Age: 15 Year
  Sex: Male
  Weight: 109 kg

DRUGS (2)
  1. ALEVE [Suspect]
     Indication: ARTHRALGIA
     Dosage: BOTTLE COUNT 24S
     Route: 048
     Dates: start: 20030101
  2. ALEVE [Suspect]
     Dosage: UNIT DOSE: 220 MG
     Route: 048
     Dates: start: 20100501

REACTIONS (1)
  - ARTHRALGIA [None]
